FAERS Safety Report 8381856-7 (Version None)
Quarter: 2012Q2

REPORT INFORMATION
  Report Type: 
  Country: None (occurrence: None)
  Receive Date: 20120522
  Receipt Date: 20120522
  Transmission Date: 20120825
  Serious: Yes (Other)
  Sender: FDA-Public Use
  Company Number: None

PATIENT
  Age: 43 Year
  Sex: Female
  Weight: 52.1637 kg

DRUGS (1)
  1. LEVAQUIN [Suspect]
     Indication: SINUSITIS
     Dosage: 1 DAILY
     Dates: start: 20120313, end: 20120322

REACTIONS (4)
  - TENDONITIS [None]
  - HEADACHE [None]
  - PAIN IN JAW [None]
  - GINGIVAL ULCERATION [None]
